FAERS Safety Report 14190567 (Version 1)
Quarter: 2017Q4

REPORT INFORMATION
  Report Type: Spontaneous
  Country: US (occurrence: US)
  Receive Date: 20171114
  Receipt Date: 20171114
  Transmission Date: 20180321
  Serious: Yes (Disabling)
  Sender: FDA-Public Use
  Company Number: None

PATIENT
  Sex: Female
  Weight: 65.25 kg

DRUGS (15)
  1. PROGESTERONE. [Concomitant]
     Active Substance: PROGESTERONE
  2. BUSPIRONE HCL [Suspect]
     Active Substance: BUSPIRONE HYDROCHLORIDE
     Indication: ANXIETY
     Dosage: ?          QUANTITY:60 TABLET(S);?
     Route: 048
     Dates: start: 20170815, end: 20171114
  3. LORAZAPAM [Concomitant]
     Active Substance: LORAZEPAM
  4. CHONDROITIN [Concomitant]
     Active Substance: CHONDROITIN
  5. LEVOTHROID [Concomitant]
     Active Substance: LEVOTHYROXINE SODIUM
  6. SERTRALINE [Concomitant]
     Active Substance: SERTRALINE HYDROCHLORIDE
  7. VITAMIN B12 [Concomitant]
     Active Substance: CYANOCOBALAMIN
  8. RUTIN [Concomitant]
     Active Substance: RUTIN
  9. SPIRONOLACTONE. [Concomitant]
     Active Substance: SPIRONOLACTONE
  10. METFORMIN [Concomitant]
     Active Substance: METFORMIN HYDROCHLORIDE
  11. ESTRADIOL. [Concomitant]
     Active Substance: ESTRADIOL
  12. ATORVASTATIN [Concomitant]
     Active Substance: ATORVASTATIN
  13. FISH OIL [Concomitant]
     Active Substance: FISH OIL
  14. ASPIRIN 81 [Concomitant]
     Active Substance: ASPIRIN
  15. VITAMIN [Concomitant]
     Active Substance: VITAMINS

REACTIONS (3)
  - Heart rate increased [None]
  - Hypertension [None]
  - Dizziness [None]

NARRATIVE: CASE EVENT DATE: 20171015
